FAERS Safety Report 6740005-9 (Version None)
Quarter: 2010Q2

REPORT INFORMATION
  Report Type: 
  Country: None (occurrence: None)
  Receive Date: 20100525
  Receipt Date: 20100520
  Transmission Date: 20101027
  Serious: Yes (Other)
  Sender: FDA-Public Use
  Company Number: US-BRISTOL-MYERS SQUIBB COMPANY-14372528

PATIENT
  Age: 19 Year
  Sex: Female

DRUGS (3)
  1. ABILIFY [Suspect]
     Indication: BIPOLAR DISORDER
  2. COGENTIN [Concomitant]
  3. LITHIUM CARBONATE [Concomitant]

REACTIONS (4)
  - ABORTION [None]
  - MANIA [None]
  - PREGNANCY [None]
  - SUICIDAL IDEATION [None]
